FAERS Safety Report 5255977-1 (Version None)
Quarter: 2007Q1

REPORT INFORMATION
  Report Type: 
  Country: None (occurrence: None)
  Receive Date: 20070302
  Receipt Date: 20070302
  Transmission Date: 20070707
  Serious: Yes (Life-Threatening, Hospitalization)
  Sender: FDA-Public Use
  Company Number: None

PATIENT
  Age: 47 Year
  Sex: Male
  Weight: 100 kg

DRUGS (11)
  1. VANCOMYCIN [Suspect]
     Indication: SEPSIS
     Dosage: 1300MG    Q 12 HOURS   IV
     Route: 042
     Dates: start: 20070223, end: 20070226
  2. VANCOMYCIN [Suspect]
     Indication: PYELONEPHRITIS
  3. DOCUSATE SODIUM [Concomitant]
  4. DIPHENHYDRAMINE HCL [Concomitant]
  5. LOSARTAN POSTASSIUM [Concomitant]
  6. NYSTATIN [Concomitant]
  7. PSYLLIUM [Concomitant]
  8. SIMVASTATIN [Concomitant]
  9. WARFARIN SODIUM [Concomitant]
  10. ACETAMINOPHEN [Concomitant]
  11. MOM [Concomitant]

REACTIONS (5)
  - CHEST PAIN [None]
  - DYSPNOEA [None]
  - GLOSSODYNIA [None]
  - INFUSION RELATED REACTION [None]
  - TONGUE DISORDER [None]
